FAERS Safety Report 4983249-9 (Version None)
Quarter: 2006Q2

REPORT INFORMATION
  Report Type: 
  Country: None (occurrence: None)
  Receive Date: 20060426
  Receipt Date: 20060417
  Transmission Date: 20061013
  Serious: No
  Sender: FDA-Public Use
  Company Number: US-JNJFOC-20060305339

PATIENT
  Sex: Female

DRUGS (2)
  1. RISPERDAL [Suspect]
     Route: 048
  2. CLONIDINE [Concomitant]
     Indication: ANXIETY

REACTIONS (1)
  - CATARACT [None]
